FAERS Safety Report 7987769-4 (Version None)
Quarter: 2011Q4

REPORT INFORMATION
  Report Type: 
  Country: None (occurrence: None)
  Receive Date: 20111216
  Receipt Date: 20101104
  Transmission Date: 20120403
  Serious: No
  Sender: FDA-Public Use
  Company Number: US-BRISTOL-MYERS SQUIBB COMPANY-15368707

PATIENT
  Sex: Female

DRUGS (3)
  1. PROZAC [Concomitant]
  2. ABILIFY [Suspect]
     Dosage: DOSE REDUCED TO 1MG
  3. LITHIUM CARBONATE [Concomitant]

REACTIONS (2)
  - BLOOD CHOLESTEROL INCREASED [None]
  - ALANINE AMINOTRANSFERASE INCREASED [None]
